FAERS Safety Report 11043730 (Version 1)
Quarter: 2015Q2

REPORT INFORMATION
  Report Type: Spontaneous
  Country: US (occurrence: US)
  Receive Date: 20150417
  Receipt Date: 20150417
  Transmission Date: 20150821
  Serious: Yes (Other)
  Sender: FDA-Public Use
  Company Number: US-BEH-2014047632

PATIENT
  Sex: Female
  Weight: 58 kg

DRUGS (9)
  1. DIPHENHYDRAMINE [Concomitant]
     Active Substance: DIPHENHYDRAMINE
  2. LIDOCAINE/PRILOCAINE [Concomitant]
  3. ZEMAIRA [Suspect]
     Active Substance: .ALPHA.1-PROTEINASE INHIBITOR HUMAN
     Indication: ALPHA-1 ANTI-TRYPSIN DEFICIENCY
     Dosage: ZEMIRA 941 MG; 60 MG WEEKLY
     Route: 042
  4. SODIUM CHLORIDE. [Concomitant]
     Active Substance: SODIUM CHLORIDE
  5. ADVAIR HFA 115-21 MCG INHALER [Concomitant]
  6. ALBUTEROL 90 MCG INHALER [Concomitant]
  7. EPIPEN [Concomitant]
     Active Substance: EPINEPHRINE
  8. L-M-X [Concomitant]
  9. VITAMIN D3 3,000 UNIT TABLET [Concomitant]

REACTIONS (3)
  - Respiratory tract oedema [Unknown]
  - Allergy to animal [Unknown]
  - Local swelling [Unknown]
